FAERS Safety Report 20815064 (Version 1)
Quarter: 2022Q2

REPORT INFORMATION
  Report Type: Spontaneous
  Country: US (occurrence: US)
  Receive Date: 20220511
  Receipt Date: 20220511
  Transmission Date: 20220721
  Serious: No
  Sender: FDA-Public Use
  Company Number: US-PFIZER INC-202200684745

PATIENT
  Age: 68 Year
  Sex: Female
  Weight: 56.7 kg

DRUGS (2)
  1. PAXLOVID [Suspect]
     Active Substance: NIRMATRELVIR\RITONAVIR
     Dosage: UNK
     Dates: start: 20220506
  2. SYNTHROID [Concomitant]
     Active Substance: LEVOTHYROXINE SODIUM
     Dosage: UNK

REACTIONS (6)
  - Nausea [Unknown]
  - Feeling abnormal [Unknown]
  - Dizziness [Unknown]
  - Dysstasia [Unknown]
  - Fear [Unknown]
  - Fall [Unknown]
